FAERS Safety Report 13913686 (Version 1)
Quarter: 2017Q3

REPORT INFORMATION
  Report Type: Spontaneous
  Country: DE (occurrence: DE)
  Receive Date: 20170829
  Receipt Date: 20170829
  Transmission Date: 20171127
  Serious: Yes (Congenital Anomaly, Other)
  Sender: FDA-Public Use
  Company Number: DE-MYLANLABS-2017M1052408

PATIENT

DRUGS (3)
  1. LEVETIRACETAM. [Suspect]
     Active Substance: LEVETIRACETAM
     Indication: EPILEPSY
     Dosage: 2500 [MG/D ]/ 1000-0-1500 MG/D
     Route: 064
     Dates: start: 20160503, end: 20161124
  2. FOLIO FORTE [Concomitant]
     Active Substance: FOLIC ACID\VITAMINS
     Indication: PROPHYLAXIS OF NEURAL TUBE DEFECT
     Dosage: 0.8 [MG/D ]
     Route: 064
     Dates: start: 20160608, end: 20161124
  3. CELESTAN                           /00008501/ [Concomitant]
     Indication: MATERNAL THERAPY TO ENHANCE FOETAL LUNG MATURITY
     Route: 064
     Dates: start: 20161123, end: 20161124

REACTIONS (5)
  - Atrial septal defect [Not Recovered/Not Resolved]
  - Cerebral haemorrhage neonatal [Recovering/Resolving]
  - Foetal exposure during pregnancy [Recovered/Resolved]
  - Patent ductus arteriosus [Recovered/Resolved]
  - Pulmonary valve stenosis congenital [Not Recovered/Not Resolved]

NARRATIVE: CASE EVENT DATE: 20161124
